FAERS Safety Report 9772512 (Version 2)
Quarter: 2014Q1

REPORT INFORMATION
  Report Type: Spontaneous
  Country: US (occurrence: US)
  Receive Date: 20131219
  Receipt Date: 20140127
  Transmission Date: 20141002
  Serious: Yes (Other)
  Sender: FDA-Public Use
  Company Number: US-TEVA-450992USA

PATIENT
  Age: 74 Year
  Sex: Female
  Weight: 54.48 kg

DRUGS (11)
  1. AZILECT [Suspect]
     Indication: PARKINSON^S DISEASE
     Dosage: 1 MILLIGRAM DAILY;
     Dates: start: 2005, end: 201312
  2. CARBIDOPA W/LEVODOPA [Concomitant]
     Indication: PARKINSON^S DISEASE
     Dosage: 5.5  DAILY; 25/100
     Route: 048
  3. PRIMIDONE [Concomitant]
     Indication: PARKINSON^S DISEASE
     Dosage: 250 MILLIGRAM DAILY;
     Route: 048
  4. LEVOTHYROXINE [Concomitant]
     Indication: HYPOTHYROIDISM
     Dosage: 75 MICROGRAM DAILY;
     Route: 048
  5. ASPIRIN [Concomitant]
     Indication: PROPHYLAXIS
     Dosage: 81 MILLIGRAM DAILY;
     Route: 048
  6. SERTRALINE [Concomitant]
     Indication: DEPRESSION
     Dosage: 50 MILLIGRAM DAILY;
     Route: 048
  7. HYDROCHLOROTHIAZID [Concomitant]
     Indication: HYPERTENSION
     Dosage: 12.5 MILLIGRAM DAILY;
     Route: 048
  8. VITAMIN D3 [Concomitant]
     Indication: VITAMIN SUPPLEMENTATION
     Dosage: 1000 IU (INTERNATIONAL UNIT) DAILY;
     Route: 048
  9. BIOTIN [Concomitant]
     Indication: VITAMIN SUPPLEMENTATION
     Dosage: 5000 MILLIGRAM DAILY;
     Route: 048
  10. COENZYME Q10 [Concomitant]
     Indication: VITAMIN SUPPLEMENTATION
     Dosage: 200 MILLIGRAM DAILY;
     Route: 048
  11. TYLENOL EXTRA-STRENGTH [Concomitant]
     Indication: PAIN
     Dosage: PRN
     Route: 048

REACTIONS (7)
  - Knee arthroplasty [Recovered/Resolved]
  - Femur fracture [Recovered/Resolved]
  - Hip surgery [Recovered/Resolved]
  - Fall [Recovered/Resolved]
  - Arthritis [Not Recovered/Not Resolved]
  - Arthralgia [Not Recovered/Not Resolved]
  - Tremor [Not Recovered/Not Resolved]
